FAERS Safety Report 5765705-9 (Version None)
Quarter: 2008Q2

REPORT INFORMATION
  Report Type: 
  Country: None (occurrence: None)
  Receive Date: 20080606
  Receipt Date: 20080528
  Transmission Date: 20081010
  Serious: Yes (Disabling, Other)
  Sender: FDA-Public Use
  Company Number: DSA_31794_2008

PATIENT
  Sex: Female
  Weight: 40.8237 kg

DRUGS (6)
  1. ATIVAN [Suspect]
     Indication: GENERALISED ANXIETY DISORDER
     Dosage: (0.5 MG BID ORAL)
     Route: 048
     Dates: start: 19980101, end: 20040101
  2. ATIVAN [Suspect]
     Indication: GENERALISED ANXIETY DISORDER
     Dosage: (0.5 MG BID ORAL)
     Route: 048
     Dates: start: 20050301, end: 20080401
  3. ATIVAN [Suspect]
     Indication: GENERALISED ANXIETY DISORDER
     Dosage: (0.5 MG BID ORAL)
     Route: 048
     Dates: start: 20080403, end: 20080418
  4. ATIVAN [Suspect]
     Indication: GENERALISED ANXIETY DISORDER
     Dosage: (0.5 MG BID ORAL)
     Route: 048
     Dates: start: 20080401
  5. LORAZEPAM [Suspect]
     Indication: GENERALISED ANXIETY DISORDER
     Dosage: (0.5 MG BID ORAL)
     Route: 048
  6. COREG [Concomitant]

REACTIONS (20)
  - ANXIETY [None]
  - CARDIAC DISORDER [None]
  - CARDIAC FAILURE CONGESTIVE [None]
  - CARDIAC VENTRICULAR DISORDER [None]
  - DRUG DEPENDENCE [None]
  - DRUG EFFECT DECREASED [None]
  - DRUG INEFFECTIVE [None]
  - DRUG WITHDRAWAL SYNDROME [None]
  - FEAR [None]
  - HEART VALVE INCOMPETENCE [None]
  - HYPOTENSION [None]
  - INSOMNIA [None]
  - MOOD ALTERED [None]
  - MUSCLE SPASMS [None]
  - MYOCARDIAL INFARCTION [None]
  - PALPITATIONS [None]
  - PHARMACEUTICAL PRODUCT COMPLAINT [None]
  - PULMONARY OEDEMA [None]
  - STRESS [None]
  - VENTRICULAR EXTRASYSTOLES [None]
